FAERS Safety Report 6850846-5 (Version None)
Quarter: 2010Q3

REPORT INFORMATION
  Report Type: 
  Country: None (occurrence: None)
  Receive Date: 20100716
  Receipt Date: 20071022
  Transmission Date: 20110219
  Serious: No
  Sender: FDA-Public Use
  Company Number: US-PFIZER INC-2007089979

PATIENT
  Sex: Female

DRUGS (4)
  1. CHANTIX [Suspect]
  2. OXYCODONE HCL [Concomitant]
  3. MORPHINE [Concomitant]
  4. SOMA [Concomitant]

REACTIONS (3)
  - DRUG DOSE OMISSION [None]
  - NAUSEA [None]
  - VOMITING [None]
